FAERS Safety Report 10136276 (Version 1)
Quarter: 2014Q2

REPORT INFORMATION
  Report Type: Spontaneous
  Country: US (occurrence: None)
  Receive Date: 20140425
  Receipt Date: 20140425
  Transmission Date: 20141212
  Serious: Yes (Death)
  Sender: FDA-Public Use
  Company Number: SYM-2014-20031

PATIENT
  Age: 66 Year
  Sex: Female

DRUGS (1)
  1. XENAZINE (TETRABENAZINE) (25 MILLIGRAM, TABLET) (TETRABENAZINE) [Suspect]
     Indication: HUNTINGTON^S DISEASE
     Dosage: 75 MG, 3 IN 1 D, ORAL
     Route: 048
     Dates: start: 20110207, end: 20140410

REACTIONS (1)
  - Death [None]
